FAERS Safety Report 14176131 (Version 6)
Quarter: 2018Q3

REPORT INFORMATION
  Report Type: Spontaneous
  Country: US (occurrence: US)
  Receive Date: 20171109
  Receipt Date: 20180924
  Transmission Date: 20181010
  Serious: Yes (Hospitalization)
  Sender: FDA-Public Use
  Company Number: US-ACTELION-A-NJ2017-162029

PATIENT
  Age: 39 Year
  Sex: Female

DRUGS (5)
  1. OXYGEN. [Concomitant]
     Active Substance: OXYGEN
     Dosage: UNK L, UNK
  2. REMODULIN [Concomitant]
     Active Substance: TREPROSTINIL
     Dosage: 90 NG/KG, PER MIN
     Route: 042
     Dates: start: 20161129
  3. REMODULIN [Concomitant]
     Active Substance: TREPROSTINIL
     Dosage: 65 NG/KG, PER MIN
     Route: 042
  4. OXYGEN. [Concomitant]
     Active Substance: OXYGEN
     Dosage: 0.5 L, UNK
  5. OPSUMIT [Suspect]
     Active Substance: MACITENTAN
     Indication: PULMONARY ARTERIAL HYPERTENSION
     Dosage: 10 MG, QD
     Route: 048
     Dates: start: 20161129

REACTIONS (5)
  - Sickle cell disease [Recovered/Resolved]
  - Hospitalisation [Not Recovered/Not Resolved]
  - Oxygen saturation decreased [Not Recovered/Not Resolved]
  - Pain [Recovered/Resolved]
  - Dyspnoea [Recovered/Resolved]

NARRATIVE: CASE EVENT DATE: 20171019
